FAERS Safety Report 5236956-7 (Version None)
Quarter: 2007Q1

REPORT INFORMATION
  Report Type: 
  Country: None (occurrence: None)
  Receive Date: 20070213
  Receipt Date: 20070201
  Transmission Date: 20070707
  Serious: Yes (Other)
  Sender: FDA-Public Use
  Company Number: HQWYE294202FEB07

PATIENT
  Age: 39 Year
  Sex: Male

DRUGS (3)
  1. PANTOPRAZOLE SODIUM [Suspect]
     Indication: REFLUX OESOPHAGITIS
     Dosage: ^MG^
     Route: 048
     Dates: start: 20050301, end: 20050101
  2. PANTOPRAZOLE SODIUM [Suspect]
     Route: 048
     Dates: start: 20051201, end: 20060116
  3. REACTINE [Concomitant]
     Route: 048

REACTIONS (5)
  - ABDOMINAL PAIN UPPER [None]
  - BACK PAIN [None]
  - NONSPECIFIC REACTION [None]
  - PAIN [None]
  - URINARY RETENTION [None]
